FAERS Safety Report 4331535-8 (Version None)
Quarter: 2004Q2

REPORT INFORMATION
  Report Type: 
  Country: None (occurrence: None)
  Receive Date: 20040402
  Receipt Date: 20040227
  Transmission Date: 20050107
  Serious: Yes (Hospitalization)
  Sender: FDA-Public Use
  Company Number: JP-MERCK-0403USA00102

PATIENT
  Age: 75 Year
  Sex: Female

DRUGS (9)
  1. FOSAMAX [Suspect]
     Indication: OSTEOPOROSIS
     Route: 048
     Dates: start: 20031203, end: 20040219
  2. BUFFERIN [Concomitant]
     Indication: PROPHYLAXIS
     Route: 048
     Dates: start: 20000626
  3. OPALMON [Concomitant]
     Route: 048
     Dates: start: 20030825
  4. SELOKEN [Concomitant]
     Indication: HYPERTENSION
     Route: 048
     Dates: start: 20011213
  5. SELOKEN [Concomitant]
     Indication: ATRIAL FIBRILLATION
     Route: 048
     Dates: start: 20011213
  6. SUNRHYTHM [Concomitant]
     Indication: ATRIAL FIBRILLATION
     Route: 048
     Dates: start: 19981204
  7. MEVALOTIN [Concomitant]
     Indication: HYPERLIPIDAEMIA
     Route: 048
     Dates: start: 19950110
  8. RHYTHMY [Concomitant]
     Indication: INSOMNIA
     Route: 048
     Dates: start: 20031104
  9. TERNELIN [Concomitant]
     Indication: BACK PAIN
     Route: 048
     Dates: start: 20030825

REACTIONS (10)
  - ALANINE AMINOTRANSFERASE INCREASED [None]
  - ASPARTATE AMINOTRANSFERASE INCREASED [None]
  - BLOOD ALKALINE PHOSPHATASE INCREASED [None]
  - BLOOD BILIRUBIN INCREASED [None]
  - BLOOD LACTATE DEHYDROGENASE INCREASED [None]
  - DECREASED APPETITE [None]
  - GAMMA-GLUTAMYLTRANSFERASE INCREASED [None]
  - HEPATIC FUNCTION ABNORMAL [None]
  - STOMACH DISCOMFORT [None]
  - THIRST [None]
